FAERS Safety Report 4379425-9 (Version None)
Quarter: 2004Q2

REPORT INFORMATION
  Report Type: 
  Country: None (occurrence: None)
  Receive Date: 20040614
  Receipt Date: 20040604
  Transmission Date: 20050107
  Serious: Yes (Hospitalization)
  Sender: FDA-Public Use
  Company Number: 200404841

PATIENT
  Age: 65 Year
  Sex: Female

DRUGS (9)
  1. BOTOX [Suspect]
     Indication: BACK PAIN
     Dosage: 200 UNITS ONCE IM
     Route: 030
  2. BOTOX [Suspect]
     Indication: MUSCLE SPASMS
     Dosage: 200 UNITS ONCE IM
     Route: 030
  3. NEURONTIN [Concomitant]
  4. GLUCOPHAGE [Concomitant]
  5. ELAVIL [Concomitant]
  6. LIDODERM [Concomitant]
  7. TOPIMAX [Concomitant]
  8. PANCREASE [Concomitant]
  9. PROTONIX [Concomitant]

REACTIONS (7)
  - BACTERIAL INFECTION [None]
  - BLOOD CULTURE POSITIVE [None]
  - CENTRAL NERVOUS SYSTEM INFECTION [None]
  - CLOSTRIDIAL INFECTION [None]
  - DIARRHOEA [None]
  - PNEUMONIA [None]
  - UROSEPSIS [None]
